FAERS Safety Report 4333161-3 (Version None)
Quarter: 2004Q2

REPORT INFORMATION
  Report Type: 
  Country: None (occurrence: None)
  Receive Date: 20040401
  Receipt Date: 20040318
  Transmission Date: 20050107
  Serious: Yes (Hospitalization)
  Sender: FDA-Public Use
  Company Number: S04-USA-00839-01

PATIENT
  Age: 69 Year
  Sex: Female
  Weight: 59.8748 kg

DRUGS (17)
  1. NAMENDA [Suspect]
     Indication: DEMENTIA
     Dosage: 10 MG QD PO
     Route: 048
  2. MEMANTINE HCL [Suspect]
     Indication: DEMENTIA
     Dosage: 5 MG QD PO
     Route: 048
     Dates: start: 20031101
  3. MEMANTINE HCL [Suspect]
     Indication: DEMENTIA
     Dosage: 10 MG QD PO
     Route: 048
  4. MEMANTINE HCL [Suspect]
     Indication: DEMENTIA
     Dosage: 15 MG QD PO
     Route: 048
  5. MEMANTINE HCL [Suspect]
     Indication: DEMENTIA
     Dosage: 10 MG BID PO
     Route: 048
  6. TOPROL-XL [Suspect]
     Indication: PARKINSON'S DISEASE
     Dates: end: 20040218
  7. COMTAN [Suspect]
     Indication: TREMOR
     Dosage: 200 MG QD
     Dates: start: 20040201, end: 20040219
  8. SINEMET [Concomitant]
  9. LIPITOR (ATORVASTATIN) [Concomitant]
  10. MIRALAX [Concomitant]
  11. ENDOCET [Concomitant]
  12. ASPIRIN [Concomitant]
  13. ZINC [Concomitant]
  14. CALCIUM [Concomitant]
  15. VITAMIN E [Concomitant]
  16. FOLIC ACID [Concomitant]
  17. LEXAPRO [Concomitant]

REACTIONS (14)
  - ASTHENIA [None]
  - CHEST PAIN [None]
  - CONTUSION [None]
  - DISEASE PROGRESSION [None]
  - FALL [None]
  - FATIGUE [None]
  - HEART RATE INCREASED [None]
  - HYPERTENSION [None]
  - MENTAL IMPAIRMENT [None]
  - ORTHOSTATIC HYPOTENSION [None]
  - PALLOR [None]
  - SCIATICA [None]
  - SYNCOPE [None]
  - TREMOR [None]
